FAERS Safety Report 7157658-6 (Version None)
Quarter: 2010Q4

REPORT INFORMATION
  Report Type: 
  Country: None (occurrence: None)
  Receive Date: 20101214
  Receipt Date: 20100311
  Transmission Date: 20110411
  Serious: No
  Sender: FDA-Public Use
  Company Number: US-ASTRAZENECA-2010SE10680

PATIENT
  Age: 57 Year
  Sex: Male
  Weight: 178.3 kg

DRUGS (13)
  1. CRESTOR [Suspect]
     Indication: BLOOD CHOLESTEROL INCREASED
     Route: 048
     Dates: start: 20090701, end: 20100101
  2. CRESTOR [Suspect]
     Route: 048
     Dates: start: 20100101, end: 20100201
  3. ASPIRIN [Concomitant]
  4. NOVOLOG [Concomitant]
  5. LABETALOL HCL [Concomitant]
  6. HYDROCHLOROTHIAZIDE [Concomitant]
  7. LASIX [Concomitant]
  8. TEKTURNA [Concomitant]
  9. FOLIC ACID [Concomitant]
  10. LISINOPRIL [Concomitant]
  11. OMEPRAZOLE [Concomitant]
  12. SERTRALINE [Concomitant]
  13. AMLODIPINE [Concomitant]

REACTIONS (4)
  - DRUG INEFFECTIVE [None]
  - MUSCULOSKELETAL STIFFNESS [None]
  - PAIN IN EXTREMITY [None]
  - WEIGHT DECREASED [None]
